FAERS Safety Report 7815930-8 (Version None)
Quarter: 2011Q4

REPORT INFORMATION
  Report Type: 
  Country: None (occurrence: None)
  Receive Date: 20111014
  Receipt Date: 20110929
  Transmission Date: 20120403
  Serious: Yes (Other)
  Sender: FDA-Public Use
  Company Number: US-ROCHE-1002357

PATIENT
  Sex: Male

DRUGS (12)
  1. SOTRET [Suspect]
     Indication: ACNE
     Dates: start: 19830101, end: 19840101
  2. SOTRET [Suspect]
     Dosage: RECEIVED IN MID 1990'S
  3. CLARAVIS [Suspect]
     Dosage: RECEIVED IN MID 1990'S
  4. ACCUTANE [Suspect]
     Indication: PRODUCT USED FOR UNKNOWN INDICATION
     Dates: start: 19830101, end: 19840101
  5. AMNESTEEM [Suspect]
     Indication: ACNE
     Dates: start: 19830101, end: 19840101
  6. SOTRET [Suspect]
     Dosage: RECEIVED IN MID 2010
  7. ACCUTANE [Suspect]
     Dosage: RECEIVED IN MID 2010
  8. AMNESTEEM [Suspect]
     Dosage: RECEIVED IN MID 2010
  9. CLARAVIS [Suspect]
     Indication: ACNE
     Dates: start: 19830101, end: 19840101
  10. ACCUTANE [Suspect]
     Dosage: RECEIVED IN MID 1990'S
  11. AMNESTEEM [Suspect]
     Dosage: RECEIVED IN MID 1990'S
  12. CLARAVIS [Suspect]
     Dosage: RECEIVED IN MID 2010

REACTIONS (4)
  - INJURY [None]
  - INFLAMMATORY BOWEL DISEASE [None]
  - ANXIETY [None]
  - COLITIS ULCERATIVE [None]
